FAERS Safety Report 6020066-5 (Version None)
Quarter: 2008Q4

REPORT INFORMATION
  Report Type: 
  Country: None (occurrence: None)
  Receive Date: 20081226
  Receipt Date: 20081124
  Transmission Date: 20090506
  Serious: No
  Sender: FDA-Public Use
  Company Number: US-BAYER-200839356NA

PATIENT
  Age: 72 Year
  Sex: Female

DRUGS (1)
  1. CIPRO [Suspect]
     Indication: UNEVALUABLE EVENT

REACTIONS (1)
  - TENDONITIS [None]
